FAERS Safety Report 7751520-3 (Version None)
Quarter: 2011Q3

REPORT INFORMATION
  Report Type: 
  Country: None (occurrence: None)
  Receive Date: 20110914
  Receipt Date: 20110907
  Transmission Date: 20111222
  Serious: Yes (Other)
  Sender: FDA-Public Use
  Company Number: PHHY2011MX80427

PATIENT
  Sex: Female

DRUGS (2)
  1. CALCIUM CARBONATE [Concomitant]
     Dosage: 1 DF, UNK
  2. ZOLEDRONOC ACID [Suspect]
     Dosage: 5 MG/100 ML ANNUALLY
     Route: 042
     Dates: start: 20090901

REACTIONS (2)
  - JOINT DISLOCATION [None]
  - FALL [None]
